FAERS Safety Report 25006815 (Version 1)
Quarter: 2025Q1

REPORT INFORMATION
  Report Type: Spontaneous
  Country: CN (occurrence: CN)
  Receive Date: 20250225
  Receipt Date: 20250225
  Transmission Date: 20250408
  Serious: Yes (Hospitalization)
  Sender: BEIGENE
  Company Number: CN-BEIGENE-BGN-2025-002667

PATIENT
  Age: 49 Year
  Weight: 43 kg

DRUGS (10)
  1. TISLELIZUMAB [Suspect]
     Active Substance: TISLELIZUMAB
     Indication: Hepatic neoplasm
  2. TISLELIZUMAB [Suspect]
     Active Substance: TISLELIZUMAB
     Route: 041
  3. TISLELIZUMAB [Suspect]
     Active Substance: TISLELIZUMAB
     Route: 041
  4. TISLELIZUMAB [Suspect]
     Active Substance: TISLELIZUMAB
  5. THIOTEPA [Suspect]
     Active Substance: THIOTEPA
     Indication: Hepatic neoplasm
     Route: 050
  6. THIOTEPA [Suspect]
     Active Substance: THIOTEPA
     Route: 050
  7. RALTITREXED [Suspect]
     Active Substance: RALTITREXED
     Indication: Hepatic neoplasm
     Route: 050
  8. RALTITREXED [Suspect]
     Active Substance: RALTITREXED
     Route: 050
  9. SODIUM CHLORIDE [Concomitant]
     Active Substance: SODIUM CHLORIDE
     Indication: Vehicle solution use
     Route: 041
  10. SODIUM CHLORIDE [Concomitant]
     Active Substance: SODIUM CHLORIDE

REACTIONS (1)
  - Myelosuppression [Unknown]
